FAERS Safety Report 9543420 (Version 2)
Quarter: 2013Q4

REPORT INFORMATION
  Report Type: Report from Study
  Country: US (occurrence: US)
  Receive Date: 20130923
  Receipt Date: 20131011
  Transmission Date: 20140711
  Serious: Yes (Hospitalization)
  Sender: FDA-Public Use
  Company Number: US-ACTELION-A-NJ2013-88474

PATIENT
  Age: 78 Year
  Sex: Female

DRUGS (4)
  1. TRACLEER [Suspect]
     Indication: PULMONARY ARTERIAL HYPERTENSION
     Dosage: UNK
     Route: 048
  2. ADCIRCA [Concomitant]
  3. COUMADIN [Concomitant]
  4. SILDENAFIL [Concomitant]

REACTIONS (3)
  - Fall [Unknown]
  - Medical device complication [Unknown]
  - Urinary tract infection [Unknown]
